FAERS Safety Report 8961310 (Version 1)
Quarter: 2012Q4

REPORT INFORMATION
  Report Type: Report from Study
  Country: US (occurrence: US)
  Receive Date: 20121212
  Receipt Date: 20121212
  Transmission Date: 20130627
  Serious: Yes (Other)
  Sender: FDA-Public Use
  Company Number: US-ABBOTT-12P-163-1017431-00

PATIENT
  Sex: Male
  Weight: 122.58 kg

DRUGS (4)
  1. HUMIRA PEN [Suspect]
     Indication: ACNE CONGLOBATA
     Dates: end: 201102
  2. HUMIRA PEN [Suspect]
     Dates: start: 201108
  3. MINOCYCLINE [Concomitant]
     Indication: PRODUCT USED FOR UNKNOWN INDICATION
  4. LORTAB [Concomitant]
     Indication: MIGRAINE

REACTIONS (2)
  - Migraine [Recovered/Resolved]
  - Off label use [Not Recovered/Not Resolved]
